FAERS Safety Report 5334040-5 (Version None)
Quarter: 2007Q2

REPORT INFORMATION
  Report Type: 
  Country: None (occurrence: None)
  Receive Date: 20070524
  Receipt Date: 20070517
  Transmission Date: 20071010
  Serious: Yes (Hospitalization)
  Sender: FDA-Public Use
  Company Number: PT-BOEHRINGER INGELHEIM PHARMACEUTICALS, INC.-2007-DE-03065BY

PATIENT
  Age: 67 Year
  Sex: Female

DRUGS (1)
  1. PRITOR PLUS [Suspect]
     Indication: HYPERTENSION
     Route: 048
     Dates: start: 20070305, end: 20070417

REACTIONS (1)
  - TOXIC SKIN ERUPTION [None]
